FAERS Safety Report 6855969-2 (Version None)
Quarter: 2010Q3

REPORT INFORMATION
  Report Type: 
  Country: None (occurrence: None)
  Receive Date: 20100716
  Receipt Date: 20100716
  Transmission Date: 20110219
  Serious: Yes (Other)
  Sender: FDA-Public Use
  Company Number: None

PATIENT
  Sex: Male
  Weight: 120.2032 kg

DRUGS (1)
  1. ANDRODERM [Suspect]
     Indication: BLOOD TESTOSTERONE DECREASED
     Dosage: 5.0 MG 24 HR PATCH
     Dates: start: 20100623, end: 20100627

REACTIONS (3)
  - CONFUSIONAL STATE [None]
  - NAUSEA [None]
  - VERTIGO [None]
